FAERS Safety Report 8609221-5 (Version None)
Quarter: 2012Q3

REPORT INFORMATION
  Report Type: 
  Country: None (occurrence: None)
  Receive Date: 20120821
  Receipt Date: 20120808
  Transmission Date: 20120928
  Serious: No
  Sender: FDA-Public Use
  Company Number: US-ASTRAZENECA-2012SE56265

PATIENT
  Age: 55 Year
  Sex: Female
  Weight: 64 kg

DRUGS (8)
  1. CALCIUM [Concomitant]
     Route: 048
  2. WELCHOL [Concomitant]
     Dosage: AS DIRECTED
  3. SYMBICORT [Suspect]
     Dosage: 160/4.5, MCG, 2 PUFFS, BID
     Route: 055
  4. SUPER B COMPLEX [Concomitant]
     Route: 048
  5. GABAPENTIN [Concomitant]
     Route: 048
  6. ASCORBIC ACID [Concomitant]
     Route: 048
  7. FOLIC ACID [Concomitant]
     Route: 048
  8. MULTI-VITAMINS [Concomitant]
     Route: 048

REACTIONS (5)
  - POLYNEUROPATHY ALCOHOLIC [None]
  - HEPATITIS C [None]
  - CHRONIC OBSTRUCTIVE PULMONARY DISEASE [None]
  - HYPERLIPIDAEMIA [None]
  - MENTAL DISORDER [None]
